FAERS Safety Report 21119293 (Version 1)
Quarter: 2022Q3

REPORT INFORMATION
  Report Type: Spontaneous
  Country: FI (occurrence: FI)
  Receive Date: 20220722
  Receipt Date: 20220722
  Transmission Date: 20221026
  Serious: Yes (Other)
  Sender: FDA-Public Use
  Company Number: None

PATIENT
  Sex: Female

DRUGS (2)
  1. HALOPERIDOL [Suspect]
     Active Substance: HALOPERIDOL
     Indication: Product used for unknown indication
     Route: 065
  2. CLOZAPINE [Suspect]
     Active Substance: CLOZAPINE
     Indication: Product used for unknown indication
     Route: 065

REACTIONS (11)
  - Depressed level of consciousness [Unknown]
  - Syncope [Unknown]
  - Depressed mood [Unknown]
  - Extrapyramidal disorder [Unknown]
  - Asthenia [Unknown]
  - Impaired work ability [Unknown]
  - Dizziness [Unknown]
  - Akathisia [Unknown]
  - Feeling abnormal [Unknown]
  - Dysuria [Unknown]
  - Tremor [Unknown]
